FAERS Safety Report 10243178 (Version 1)
Quarter: 2014Q2

REPORT INFORMATION
  Report Type: Spontaneous
  Country: JP (occurrence: JP)
  Receive Date: 20140618
  Receipt Date: 20140618
  Transmission Date: 20141212
  Serious: No
  Sender: FDA-Public Use
  Company Number: JP-JNJFOC-20140603703

PATIENT
  Sex: Male

DRUGS (2)
  1. DUROTEP MT [Suspect]
     Indication: BACK PAIN
     Route: 062
  2. DUROTEP MT [Suspect]
     Indication: BACK PAIN
     Route: 062

REACTIONS (2)
  - Pruritus generalised [Unknown]
  - Incorrect drug administration duration [Unknown]
